FAERS Safety Report 10560020 (Version 1)
Quarter: 2014Q4

REPORT INFORMATION
  Report Type: Spontaneous
  Country: US (occurrence: None)
  Receive Date: 20141030
  Receipt Date: 20141030
  Transmission Date: 20150529
  Serious: Yes (Other)
  Sender: FDA-Public Use
  Company Number: 2590862

PATIENT
  Age: 6 Year
  Sex: Female
  Weight: 17.8 kg

DRUGS (1)
  1. METRONIDAZOLE. [Suspect]
     Active Substance: METRONIDAZOLE
     Indication: INFECTION
     Dosage: 1 DAY, INTRAVENOUS DRIP
     Route: 042
     Dates: start: 20141008, end: 20141008

REACTIONS (3)
  - Malaise [None]
  - Nausea [None]
  - Vomiting [None]

NARRATIVE: CASE EVENT DATE: 20141008
